FAERS Safety Report 22189333 (Version 2)
Quarter: 2023Q2

REPORT INFORMATION
  Report Type: Report from Study
  Country: US (occurrence: US)
  Receive Date: 20230410
  Receipt Date: 20230411
  Transmission Date: 20230721
  Serious: Yes (Hospitalization, Other)
  Sender: FDA-Public Use
  Company Number: US-ABBVIE-4722035

PATIENT
  Sex: Female

DRUGS (2)
  1. CREON [Suspect]
     Active Substance: PANCRELIPASE AMYLASE\PANCRELIPASE LIPASE\PANCRELIPASE PROTEASE
     Indication: Product used for unknown indication
     Route: 048
  2. CREON [Suspect]
     Active Substance: PANCRELIPASE AMYLASE\PANCRELIPASE LIPASE\PANCRELIPASE PROTEASE
     Indication: Product used for unknown indication
     Dosage: FIRST ADMIN DATE: 19 JUL 2022, LAST ADMIN DATE: 2022
     Route: 048

REACTIONS (9)
  - Alcohol use [Unknown]
  - Blood sodium decreased [Recovered/Resolved]
  - Oesophageal haemorrhage [Recovered/Resolved]
  - Hepatic cirrhosis [Recovering/Resolving]
  - Ascites [Not Recovered/Not Resolved]
  - Gastrooesophageal reflux disease [Unknown]
  - Tracheostomy [Unknown]
  - Hepatic function abnormal [Unknown]
  - Gastrointestinal tube insertion [Unknown]

NARRATIVE: CASE EVENT DATE: 20220101
